FAERS Safety Report 7438282-4 (Version None)
Quarter: 2011Q2

REPORT INFORMATION
  Report Type: 
  Country: None (occurrence: None)
  Receive Date: 20110426
  Receipt Date: 20110413
  Transmission Date: 20111010
  Serious: Yes (Hospitalization, Other)
  Sender: FDA-Public Use
  Company Number: US-PAR PHARMACEUTICAL, INC-2011SCPR002871

PATIENT
  Age: 15 Year
  Sex: Female

DRUGS (1)
  1. METRONIDAZOLE [Suspect]
     Indication: VAGINITIS BACTERIAL
     Dosage: UNK, UNKNOWN
     Route: 065

REACTIONS (5)
  - PERIPHERAL SENSORIMOTOR NEUROPATHY [None]
  - TYPE III IMMUNE COMPLEX MEDIATED REACTION [None]
  - DIARRHOEA [None]
  - AUTONOMIC NEUROPATHY [None]
  - COMPLEX REGIONAL PAIN SYNDROME [None]
